FAERS Safety Report 9359422 (Version 4)
Quarter: 2013Q3

REPORT INFORMATION
  Report Type: Spontaneous
  Country: JP (occurrence: JP)
  Receive Date: 20130620
  Receipt Date: 20130708
  Transmission Date: 20140515
  Serious: Yes (Other)
  Sender: FDA-Public Use
  Company Number: JP-PFIZER INC-2013183362

PATIENT
  Age: 35 Year
  Sex: Male
  Weight: 35 kg

DRUGS (21)
  1. FOSPHENYTOIN SODIUM [Suspect]
     Indication: STATUS EPILEPTICUS
     Dosage: 1125 MG, UNK
     Route: 042
     Dates: start: 20130523, end: 20130523
  2. PHENOBARBITAL [Concomitant]
     Indication: EPILEPSY
     Dosage: 70 MG, UNK
     Route: 048
  3. TEGRETOL [Concomitant]
     Indication: EPILEPSY
     Dosage: 300 MG, UNK
     Route: 048
  4. RIVOTRIL [Concomitant]
     Indication: EPILEPSY
     Dosage: 1 MG, UNK
  5. EXCEGRAN [Concomitant]
     Indication: EPILEPSY
     Dosage: 300 MG, UNK
     Route: 048
     Dates: start: 20121114, end: 20130527
  6. GABAPENTIN [Concomitant]
     Indication: EPILEPSY
     Dosage: 1200 MG, UNK
     Route: 048
  7. MUCODYNE [Concomitant]
     Indication: CHRONIC RESPIRATORY FAILURE
     Dosage: 750 MG, UNK
     Route: 048
  8. BIOLACTIS [Concomitant]
     Indication: DIARRHOEA
     Dosage: 3 G, UNK
     Route: 048
     Dates: end: 20130531
  9. RISPERDAL [Concomitant]
     Indication: INSOMNIA
     Dosage: 0.5 MG, UNK
     Route: 048
     Dates: end: 20130527
  10. BENZALIN [Concomitant]
     Indication: INSOMNIA
     Dosage: 5 MG, UNK
     Route: 048
     Dates: end: 20130527
  11. GASMOTIN [Concomitant]
     Indication: GASTRITIS
     Dosage: 15 MG, UNK
     Route: 048
  12. DIAPP [Concomitant]
     Indication: STATUS EPILEPTICUS
     Dosage: 6 MG, UNK
     Route: 054
     Dates: start: 20130523
  13. DORMICUM FOR INJECTION [Concomitant]
     Indication: STATUS EPILEPTICUS
     Dosage: 10 MG, UNK
     Dates: start: 20130523
  14. NOBELBAR [Concomitant]
     Indication: STATUS EPILEPTICUS
     Dosage: 250 MG, UNK
     Dates: start: 20130523
  15. ESCRE [Concomitant]
     Indication: STATUS EPILEPTICUS
     Dosage: 1500 MG, UNK
     Dates: start: 20130523
  16. UNASYN S [Concomitant]
     Indication: SEPSIS
     Dosage: 4.5 G, UNK
     Dates: start: 20130523, end: 20130524
  17. PYRAMIDE [Concomitant]
     Indication: TUBERCULOUS PLEURISY
     Dosage: 1.2 G, UNK
     Route: 048
     Dates: start: 20121113, end: 20130527
  18. ESANBUTOL [Concomitant]
     Indication: TUBERCULOUS PLEURISY
     Dosage: 750 MG, UNK
     Route: 048
     Dates: start: 20121107, end: 20130527
  19. ISCOTIN [Concomitant]
     Indication: TUBERCULOUS PLEURISY
     Dosage: 300 MG, UNK
     Route: 048
     Dates: start: 20121121, end: 20130527
  20. PYDOXAL [Concomitant]
     Indication: HYPOVITAMINOSIS
     Dosage: UNK
     Route: 048
  21. INOVAN [Concomitant]
     Indication: BLOOD PRESSURE
     Dosage: 5 G, UNK
     Dates: start: 20130524

REACTIONS (8)
  - Infection [Unknown]
  - Sepsis [Recovered/Resolved]
  - Septic shock [Unknown]
  - Cardiac failure [Unknown]
  - Hypotension [Recovered/Resolved]
  - Arrhythmia [Recovering/Resolving]
  - Disseminated intravascular coagulation [Recovered/Resolved]
  - Pyrexia [Unknown]
